FAERS Safety Report 22346068 (Version 1)
Quarter: 2023Q2

REPORT INFORMATION
  Report Type: Spontaneous
  Country: US (occurrence: US)
  Receive Date: 20230519
  Receipt Date: 20230519
  Transmission Date: 20230721
  Serious: Yes (Other)
  Sender: FDA-Public Use
  Company Number: US-FreseniusKabi-FK202306849

PATIENT
  Age: 72 Year
  Sex: Male

DRUGS (4)
  1. CISPLATIN [Suspect]
     Active Substance: CISPLATIN
     Indication: Squamous cell carcinoma
  2. CETUXIMAB [Concomitant]
     Active Substance: CETUXIMAB
     Indication: Squamous cell carcinoma
  3. isotonic sodium-chloride [Concomitant]
     Indication: Nephropathy toxic
  4. isotonic sodium-chloride [Concomitant]
     Indication: Prophylaxis

REACTIONS (1)
  - Renal salt-wasting syndrome [Unknown]
